FAERS Safety Report 6637569-2 (Version None)
Quarter: 2010Q1

REPORT INFORMATION
  Report Type: 
  Country: None (occurrence: None)
  Receive Date: 20100317
  Receipt Date: 20100303
  Transmission Date: 20100710
  Serious: Yes (Hospitalization)
  Sender: FDA-Public Use
  Company Number: JP-RANBAXY-2010RR-32349

PATIENT
  Age: 20 Year
  Sex: Female

DRUGS (6)
  1. PARACETAMOL [Suspect]
     Route: 048
  2. IBUPROFEN [Suspect]
     Route: 048
  3. EPHEDRINE SUL CAP [Suspect]
     Route: 048
  4. CAFFEINE CITRATE [Suspect]
     Route: 048
  5. BROMISOVAL [Suspect]
     Route: 048
  6. ETHENZAMIDE [Suspect]
     Route: 048

REACTIONS (5)
  - DRUG INTERACTION [None]
  - HYPOKALAEMIA [None]
  - LIVER INJURY [None]
  - LOSS OF CONSCIOUSNESS [None]
  - TACHYCARDIA [None]
